FAERS Safety Report 8986603 (Version 1)
Quarter: 2012Q4

REPORT INFORMATION
  Report Type: 
  Country: US (occurrence: US)
  Receive Date: 20121227
  Receipt Date: 20121227
  Transmission Date: 20130627
  Serious: Yes (Other)
  Sender: FDA-Public Use
  Company Number: US-ELI_LILLY_AND_COMPANY-US201212007100

PATIENT
  Sex: Female

DRUGS (6)
  1. EVISTA [Suspect]
     Indication: OSTEOPENIA
     Dosage: 60 mg, qd
     Dates: start: 200909
  2. SYNTHROID [Concomitant]
     Dosage: UNK, qd
  3. PROVIGIL [Concomitant]
     Dosage: UNK, qd
  4. CALCIUM [Concomitant]
     Dosage: UNK, qd
  5. VITAMIN D NOS [Concomitant]
     Dosage: UNK, qd
  6. ZITHROMYCIN [Concomitant]
     Dosage: UNK, qd

REACTIONS (10)
  - Systemic sclerosis [Unknown]
  - Meniere^s disease [Unknown]
  - Breast calcifications [Unknown]
  - Cyst [Unknown]
  - Uterine leiomyoma [Unknown]
  - Fibrocystic breast disease [Unknown]
  - Premenstrual syndrome [Unknown]
  - Fall [Unknown]
  - Off label use [Unknown]
  - Gastrointestinal disorder [Unknown]
